FAERS Safety Report 7376058-7 (Version None)
Quarter: 2011Q1

REPORT INFORMATION
  Report Type: 
  Country: None (occurrence: None)
  Receive Date: 20110325
  Receipt Date: 20110322
  Transmission Date: 20110831
  Serious: Yes (Hospitalization, Other)
  Sender: FDA-Public Use
  Company Number: BR-ABBOTT-11P-020-0711150-00

PATIENT
  Sex: Female
  Weight: 60 kg

DRUGS (2)
  1. LEFLUNOMIDE [Concomitant]
     Indication: RHEUMATOID ARTHRITIS
     Route: 048
  2. HUMIRA [Suspect]
     Indication: RHEUMATOID ARTHRITIS
     Route: 058
     Dates: start: 20100421

REACTIONS (10)
  - PYREXIA [None]
  - HERPES ZOSTER [None]
  - BLOOD CHOLESTEROL INCREASED [None]
  - IMMUNODEFICIENCY [None]
  - NEURALGIA [None]
  - WEIGHT DECREASED [None]
  - PAIN [None]
  - BACK PAIN [None]
  - MALAISE [None]
  - NERVE INJURY [None]
